FAERS Safety Report 15977688 (Version 1)
Quarter: 2019Q1

REPORT INFORMATION
  Report Type: Spontaneous
  Country: IL (occurrence: IL)
  Receive Date: 20190218
  Receipt Date: 20190218
  Transmission Date: 20190418
  Serious: Yes (Hospitalization)
  Sender: FDA-Public Use
  Company Number: IL-MYLANLABS-2019M1014621

PATIENT
  Age: 68 Year
  Sex: Female

DRUGS (1)
  1. WARFARIN [Suspect]
     Active Substance: WARFARIN
     Indication: ATRIAL FIBRILLATION
     Route: 065

REACTIONS (5)
  - Corneal bleeding [Recovered/Resolved]
  - Visual acuity reduced [Recovering/Resolving]
  - Intraocular pressure increased [Recovering/Resolving]
  - International normalised ratio increased [Recovering/Resolving]
  - Hyphaema [Recovered/Resolved]
